FAERS Safety Report 19309389 (Version 1)
Quarter: 2021Q2

REPORT INFORMATION
  Report Type: Spontaneous
  Country: US (occurrence: US)
  Receive Date: 20210525
  Receipt Date: 20210525
  Transmission Date: 20210717
  Serious: Yes (Other)
  Sender: FDA-Public Use
  Company Number: US-GLAXOSMITHKLINE-US2021GSK111414

PATIENT
  Sex: Male

DRUGS (12)
  1. RANITIDINE. [Suspect]
     Active Substance: RANITIDINE
     Dosage: UNK
  2. ZANTAC [Suspect]
     Active Substance: RANITIDINE HYDROCHLORIDE
     Dosage: 150 MG
     Route: 065
     Dates: start: 200210, end: 201905
  3. RANITIDINE CAPSULE [Suspect]
     Active Substance: RANITIDINE
     Indication: GASTRIC ULCER
     Dosage: OCCASIONAL|150 MG|BOTH
     Route: 065
     Dates: start: 200210, end: 201905
  4. RANITIDINE. [Suspect]
     Active Substance: RANITIDINE
     Dosage: 150 MG
     Route: 065
     Dates: start: 200210, end: 201905
  5. ZANTAC [Suspect]
     Active Substance: RANITIDINE HYDROCHLORIDE
     Indication: GASTRIC ULCER
     Dosage: OCCASIONAL|75 MG|BOTH
     Route: 065
     Dates: start: 200210, end: 201905
  6. RANITIDINE CAPSULE [Suspect]
     Active Substance: RANITIDINE
     Dosage: OCCASIONAL|75 MG|BOTH
     Route: 065
     Dates: start: 200210, end: 201905
  7. ZANTAC [Suspect]
     Active Substance: RANITIDINE HYDROCHLORIDE
     Indication: GASTRIC ULCER
     Dosage: OCCASIONAL|75 MG|BOTH
     Route: 065
     Dates: start: 200210, end: 201905
  8. RANITIDINE. [Suspect]
     Active Substance: RANITIDINE
     Indication: GASTRIC ULCER
     Dosage: OCCASIONAL|75 MG|BOTH
     Route: 065
     Dates: start: 200210, end: 201905
  9. RANITIDINE. [Suspect]
     Active Substance: RANITIDINE
     Dosage: 150 MG
     Route: 065
     Dates: start: 200210, end: 201905
  10. RANITIDINE. [Suspect]
     Active Substance: RANITIDINE
     Indication: GASTRIC ULCER
     Dosage: OCCASIONAL|75 MG|BOTH
     Route: 065
     Dates: start: 200210, end: 201905
  11. RANITIDINE. [Suspect]
     Active Substance: RANITIDINE
     Indication: GASTRIC ULCER
     Dosage: 150 MG
     Route: 065
     Dates: start: 200210, end: 201905
  12. ZANTAC [Suspect]
     Active Substance: RANITIDINE HYDROCHLORIDE
     Dosage: 150 MG
     Route: 065
     Dates: start: 200210, end: 201905

REACTIONS (1)
  - Thyroid cancer [Unknown]
